FAERS Safety Report 9371620 (Version 1)
Quarter: 2013Q2

REPORT INFORMATION
  Report Type: Spontaneous
  Country: US (occurrence: US)
  Receive Date: 20130627
  Receipt Date: 20130627
  Transmission Date: 20140414
  Serious: Yes (Other)
  Sender: FDA-Public Use
  Company Number: PHEH2013US013693

PATIENT
  Sex: Female

DRUGS (3)
  1. DIOVAN HCT [Suspect]
     Dosage: UNK UKN, UNK
  2. DIOVAN [Suspect]
     Dosage: 0.5 DF, (180 MG) DAILY
  3. ATENOLOL [Concomitant]
     Dosage: UNK UKN, UNK

REACTIONS (3)
  - Dementia [Unknown]
  - Renal disorder [Unknown]
  - Wrong technique in drug usage process [Unknown]
